FAERS Safety Report 12289971 (Version 2)
Quarter: 2016Q3

REPORT INFORMATION
  Report Type: Spontaneous
  Country: IT (occurrence: IT)
  Receive Date: 20160421
  Receipt Date: 20160710
  Transmission Date: 20161109
  Serious: Yes (Hospitalization)
  Sender: FDA-Public Use
  Company Number: IT-TEVA-653560ACC

PATIENT
  Age: 87 Year
  Sex: Female
  Weight: 67 kg

DRUGS (8)
  1. BISOPROLOL HEMIFUMARATE [Suspect]
     Active Substance: BISOPROLOL FUMARATE
     Indication: HYPERTENSION
     Dosage: 2.5 MILLIGRAM DAILY;
     Route: 048
     Dates: start: 20160329, end: 20160405
  2. LANOXIN [Interacting]
     Active Substance: DIGOXIN
     Indication: HYPERTENSIVE HEART DISEASE
     Dosage: 125 MICROGRAM DAILY;
     Route: 048
     Dates: end: 20160405
  3. NORMIX [Concomitant]
     Active Substance: RIFAXIMIN
     Indication: PRODUCT USED FOR UNKNOWN INDICATION
     Dosage: CYCLICAL
  4. LASIX [Concomitant]
     Active Substance: FUROSEMIDE
     Indication: DIURETIC THERAPY
     Dosage: 25 MG
     Route: 048
     Dates: end: 20160409
  5. EUTIROX - 100 MICROGRAMMI COMPRESSE [Concomitant]
     Indication: HYPOTHYROIDISM
     Dosage: 100 UG
     Route: 048
     Dates: end: 20160409
  6. EUTIROX - 50 MICROGRAMMI COMPRESSE [Concomitant]
     Indication: HYPOTHYROIDISM
     Dosage: 50 MG
     Route: 048
     Dates: end: 20160409
  7. ALMARYTM - 100 MG COMPRESSE - MEDA PHARMA S.P.A. [Interacting]
     Active Substance: FLECAINIDE ACETATE
     Indication: ARRHYTHMIA
     Dosage: 100 MILLIGRAM DAILY;
     Route: 048
     Dates: end: 20160405
  8. COUMADIN [Concomitant]
     Active Substance: WARFARIN SODIUM
     Indication: ATRIAL FIBRILLATION
     Dosage: 5 MG
     Route: 048
     Dates: end: 20160409

REACTIONS (3)
  - Bradycardia [Recovered/Resolved]
  - Overdose [Recovered/Resolved]
  - Drug interaction [Unknown]

NARRATIVE: CASE EVENT DATE: 20160405
